FAERS Safety Report 9540322 (Version 2)
Quarter: 2014Q1

REPORT INFORMATION
  Report Type: Spontaneous
  Country: GB (occurrence: None)
  Receive Date: 20130917
  Receipt Date: 20140122
  Transmission Date: 20141002
  Serious: Yes (Hospitalization, Other)
  Sender: FDA-Public Use
  Company Number: 2013AP007980

PATIENT
  Age: 61 Year
  Sex: Female

DRUGS (5)
  1. ALENDRONATE [Suspect]
     Indication: OSTEOPOROSIS
     Route: 048
     Dates: start: 20130204, end: 20130311
  2. MINERAL SUPPLEMENTS (MINERAL SUPPLEMENTS) [Concomitant]
  3. CALCICHEW (CALCIUM CARBONATE) [Concomitant]
  4. LINUM USITATISSIMUM (LINUM USITATISSIMUM) [Concomitant]
  5. VITAMIN E (TOCOPHEROL) [Concomitant]

REACTIONS (4)
  - Muscle spasms [None]
  - Headache [None]
  - Myalgia [None]
  - Neck pain [None]
